FAERS Safety Report 15384329 (Version 3)
Quarter: 2019Q1

REPORT INFORMATION
  Report Type: Spontaneous
  Country: JP (occurrence: JP)
  Receive Date: 20180914
  Receipt Date: 20190306
  Transmission Date: 20190417
  Serious: Yes (Hospitalization)
  Sender: FDA-Public Use
  Company Number: JP-ORION CORPORATION ORION PHARMA-ENTC2018-0220

PATIENT
  Age: 68 Year
  Sex: Male

DRUGS (3)
  1. DOPACOL [Suspect]
     Active Substance: CARBIDOPA\LEVODOPA
     Indication: PARKINSON^S DISEASE
     Route: 048
     Dates: start: 20180710
  2. STALEVO [Suspect]
     Active Substance: CARBIDOPA\ENTACAPONE\LEVODOPA
     Indication: PARKINSON^S DISEASE
     Dosage: STRENGTH: LEVODOPA UNKNOWN/CARBIDOPA UNKNOWN/ENTACAPONE 100 MG, 600 MG DAILY
     Route: 048
     Dates: start: 20180703, end: 20180713
  3. FP [Suspect]
     Active Substance: SELEGILINE HYDROCHLORIDE
     Indication: PARKINSON^S DISEASE
     Route: 048
     Dates: start: 20180629, end: 20180713

REACTIONS (4)
  - Impulsive behaviour [Recovered/Resolved]
  - Hallucination [Recovered/Resolved]
  - Aggression [Recovered/Resolved]
  - Drug level increased [Recovered/Resolved]

NARRATIVE: CASE EVENT DATE: 20180712
